FAERS Safety Report 25257255 (Version 2)
Quarter: 2025Q2

REPORT INFORMATION
  Report Type: Spontaneous
  Country: US (occurrence: US)
  Receive Date: 20250430
  Receipt Date: 20250612
  Transmission Date: 20250717
  Serious: No
  Sender: PFIZER
  Company Number: US-PFIZER INC-202500089781

PATIENT
  Age: 71 Year
  Sex: Male
  Weight: 104.33 kg

DRUGS (1)
  1. PAXLOVID [Suspect]
     Active Substance: NIRMATRELVIR\RITONAVIR
     Indication: COVID-19 treatment
     Dosage: (NIRMATRELVIR 300 MG)/(RITONAVIR 100MG), 2X/DAY
     Dates: start: 20250424

REACTIONS (2)
  - Product packaging quantity issue [Unknown]
  - Poor quality product administered [Unknown]

NARRATIVE: CASE EVENT DATE: 20250425
